FAERS Safety Report 6894560-9 (Version None)
Quarter: 2010Q3

REPORT INFORMATION
  Report Type: 
  Country: None (occurrence: None)
  Receive Date: 20100802
  Receipt Date: 20100719
  Transmission Date: 20110219
  Serious: Yes (Other)
  Sender: FDA-Public Use
  Company Number: PHHY2010DE11841

PATIENT
  Age: 55 Year
  Sex: Male
  Weight: 82 kg

DRUGS (3)
  1. RASILEZ [Suspect]
     Indication: HYPERTENSION
     Dosage: 150 MG/DAY
     Route: 048
     Dates: start: 20100124, end: 20100223
  2. IBUPROFEN [Concomitant]
     Dosage: 400 MG/DAY IN CASE OF NEED
  3. ANTIHYPERTENSIVES [Concomitant]
     Dosage: UNK
     Dates: start: 20100415

REACTIONS (10)
  - ALANINE AMINOTRANSFERASE INCREASED [None]
  - ASPARTATE AMINOTRANSFERASE INCREASED [None]
  - HEADACHE [None]
  - HEPATITIS TOXIC [None]
  - HYPERTENSIVE CRISIS [None]
  - INTRACRANIAL PRESSURE INCREASED [None]
  - NAUSEA [None]
  - STRESS [None]
  - TRANSAMINASES INCREASED [None]
  - VOMITING [None]
